APPROVED DRUG PRODUCT: CHILDREN'S FEXOFENADINE HYDROCHLORIDE ALLERGY
Active Ingredient: FEXOFENADINE HYDROCHLORIDE
Strength: 30MG/5ML
Dosage Form/Route: SUSPENSION;ORAL
Application: A208123 | Product #001
Applicant: TARO PHARMACEUTICAL INDUSTRIES LTD
Approved: Nov 9, 2017 | RLD: No | RS: No | Type: OTC